FAERS Safety Report 4987987-3 (Version None)
Quarter: 2006Q2

REPORT INFORMATION
  Report Type: 
  Country: None (occurrence: None)
  Receive Date: 20060426
  Receipt Date: 20060412
  Transmission Date: 20061013
  Serious: Yes (Hospitalization, Disabling, Other)
  Sender: FDA-Public Use
  Company Number: 2006EU000174

PATIENT
  Age: 4 Year
  Sex: Male

DRUGS (3)
  1. PROGRAF [Suspect]
     Indication: RENAL TRANSPLANT
     Dosage: SEE IMAGE
     Route: 048
     Dates: start: 20040701
  2. PREDNISOLONE [Concomitant]
  3. MAGNESIUM (MAGNESIUM) [Concomitant]

REACTIONS (1)
  - OPTIC ATROPHY [None]
